FAERS Safety Report 8281687-2 (Version None)
Quarter: 2012Q2

REPORT INFORMATION
  Report Type: 
  Country: None (occurrence: None)
  Receive Date: 20120410
  Receipt Date: 20120402
  Transmission Date: 20120825
  Serious: Yes (Hospitalization, Disabling)
  Sender: FDA-Public Use
  Company Number: AUR-APL-2012-01671

PATIENT
  Age: 69 Year
  Sex: Male

DRUGS (1)
  1. ALENDRONIC ACID (ALENDRONIC ACID) [Suspect]
     Indication: OSTEOPOROSIS
     Dosage: (10 MG),ORAL
     Route: 048
     Dates: start: 20000101, end: 20120312

REACTIONS (2)
  - FEMUR FRACTURE [None]
  - STRESS FRACTURE [None]
